FAERS Safety Report 4733204-9 (Version None)
Quarter: 2005Q3

REPORT INFORMATION
  Report Type: 
  Country: None (occurrence: None)
  Receive Date: 20050801
  Receipt Date: 20050801
  Transmission Date: 20060218
  Serious: Yes (Hospitalization)
  Sender: FDA-Public Use
  Company Number: None

PATIENT
  Age: 78 Year
  Sex: Male

DRUGS (6)
  1. FUROSEMIDE [Suspect]
     Indication: HYPERTENSION
     Dosage: 40 MG QD
     Dates: start: 19950420
  2. FOSINOPRIL SODIUM [Suspect]
     Indication: HYPERTENSION
     Dosage: 10 MG QAM
     Dates: start: 19961223
  3. LORTAD [Concomitant]
  4. ASPIRIN [Concomitant]
  5. METOPROLOL [Concomitant]
  6. GALANTAMINE HYDROBROMIDE [Concomitant]

REACTIONS (1)
  - RENAL FAILURE ACUTE [None]
